FAERS Safety Report 6600685-5 (Version None)
Quarter: 2010Q1

REPORT INFORMATION
  Report Type: 
  Country: None (occurrence: None)
  Receive Date: 20100223
  Receipt Date: 20100223
  Transmission Date: 20100710
  Serious: Yes (Other)
  Sender: FDA-Public Use
  Company Number: None

PATIENT
  Age: 42 Year
  Sex: Female
  Weight: 54.4316 kg

DRUGS (1)
  1. ZICAM NASAL SWABS -TWIN PACK- 15ML MATRIXX [Suspect]
     Indication: NASOPHARYNGITIS
     Dosage: 2 X DAILY 2 X DAY NASAL
     Route: 045
     Dates: start: 20051115, end: 20060207

REACTIONS (3)
  - ANGER [None]
  - ANOSMIA [None]
  - HYPOGEUSIA [None]
